APPROVED DRUG PRODUCT: VASERETIC
Active Ingredient: ENALAPRIL MALEATE; HYDROCHLOROTHIAZIDE
Strength: 10MG;25MG
Dosage Form/Route: TABLET;ORAL
Application: N019221 | Product #001 | TE Code: AB
Applicant: BAUSCH HEALTH US LLC
Approved: Oct 31, 1986 | RLD: Yes | RS: Yes | Type: RX